FAERS Safety Report 7796615-3 (Version None)
Quarter: 2011Q4

REPORT INFORMATION
  Report Type: 
  Country: None (occurrence: None)
  Receive Date: 20111005
  Receipt Date: 20110929
  Transmission Date: 20120403
  Serious: Yes (Life-Threatening, Other)
  Sender: FDA-Public Use
  Company Number: FR-PFIZER INC-2011225245

PATIENT
  Age: 71 Year
  Sex: Male

DRUGS (1)
  1. RELISTOR [Suspect]
     Indication: CONSTIPATION
     Dosage: 0.6 ML
     Route: 058
     Dates: start: 20110523, end: 20110523

REACTIONS (6)
  - MALAISE [None]
  - ANXIETY [None]
  - HYPERHIDROSIS [None]
  - TACHYPNOEA [None]
  - RESPIRATORY DISTRESS [None]
  - PALLOR [None]
